FAERS Safety Report 7831440-6 (Version None)
Quarter: 2011Q4

REPORT INFORMATION
  Report Type: 
  Country: None (occurrence: None)
  Receive Date: 20111021
  Receipt Date: 20111011
  Transmission Date: 20120403
  Serious: Yes (Hospitalization)
  Sender: FDA-Public Use
  Company Number: US-ACTELION-A-NJ2011-51432

PATIENT

DRUGS (3)
  1. TRACLEER [Suspect]
     Indication: PULMONARY ARTERIAL HYPERTENSION
     Dosage: UNK
     Route: 048
     Dates: start: 20090101
  2. TYVASO [Concomitant]
  3. ADCIRCA [Concomitant]

REACTIONS (6)
  - DYSPNOEA [None]
  - PYREXIA [None]
  - PLATELET COUNT DECREASED [None]
  - PNEUMONIA [None]
  - CHILLS [None]
  - BACK PAIN [None]
